FAERS Safety Report 18144712 (Version 1)
Quarter: 2020Q3

REPORT INFORMATION
  Report Type: Spontaneous
  Country: US (occurrence: US)
  Receive Date: 20200813
  Receipt Date: 20200813
  Transmission Date: 20201103
  Serious: No
  Sender: FDA-Public Use
  Company Number: US-NOVEN PHARMACEUTICALS, INC.-US2020000070

PATIENT

DRUGS (6)
  1. COMBIPATCH [Suspect]
     Active Substance: ESTRADIOL\NORETHINDRONE ACETATE
     Indication: HORMONE LEVEL ABNORMAL
     Dosage: 0.05/0.14 MG, 2/WK
     Route: 062
     Dates: start: 202001, end: 202005
  2. VITAMIN C [Concomitant]
     Active Substance: ASCORBIC ACID
  3. COMBIPATCH [Suspect]
     Active Substance: ESTRADIOL\NORETHINDRONE ACETATE
     Indication: NIGHT SWEATS
  4. COMBIPATCH [Suspect]
     Active Substance: ESTRADIOL\NORETHINDRONE ACETATE
     Indication: OFF LABEL USE
  5. COMBIPATCH [Suspect]
     Active Substance: ESTRADIOL\NORETHINDRONE ACETATE
     Indication: HOT FLUSH
  6. VITAMINS NOS [Concomitant]
     Active Substance: VITAMINS

REACTIONS (11)
  - Abdominal distension [Unknown]
  - Application site inflammation [Unknown]
  - Application site irritation [Unknown]
  - Off label use [Recovered/Resolved]
  - Weight increased [Unknown]
  - Central obesity [Unknown]
  - Application site pruritus [Unknown]
  - Application site erythema [Unknown]
  - Breast enlargement [Unknown]
  - Postmenopausal haemorrhage [Recovered/Resolved]
  - Application site discomfort [Unknown]

NARRATIVE: CASE EVENT DATE: 202001
